FAERS Safety Report 9942096 (Version 1)
Quarter: 2014Q1

REPORT INFORMATION
  Report Type: Report from Study
  Country: US (occurrence: US)
  Receive Date: 20140303
  Receipt Date: 20140303
  Transmission Date: 20141002
  Serious: No
  Sender: FDA-Public Use
  Company Number: US-ABBVIE-13P-163-1039529-00

PATIENT
  Age: 32 Year
  Sex: Female
  Weight: 70.4 kg

DRUGS (12)
  1. HUMIRA [Suspect]
     Indication: CROHN^S DISEASE
     Dates: start: 20100612, end: 20101001
  2. HUMIRA [Suspect]
     Dates: start: 20101002, end: 20110305
  3. PRENATAL VITAMINS [Concomitant]
     Indication: PRODUCT USED FOR UNKNOWN INDICATION
     Route: 048
     Dates: start: 20100612, end: 20110308
  4. DHA [Concomitant]
     Indication: PRODUCT USED FOR UNKNOWN INDICATION
     Route: 048
     Dates: start: 20100612, end: 20110308
  5. MENOPUR [Concomitant]
     Indication: IN VITRO FERTILISATION
     Route: 050
     Dates: start: 20100612, end: 20100616
  6. MENOPUR [Concomitant]
     Indication: IN VITRO FERTILISATION
  7. BRAVELLE [Concomitant]
     Indication: INFERTILITY FEMALE
     Route: 050
     Dates: start: 20100612, end: 20100625
  8. PROGESTERONE [Concomitant]
     Indication: INFERTILITY FEMALE
     Route: 050
     Dates: start: 20100702, end: 20100722
  9. INFLUENZA VACCINE [Concomitant]
     Indication: ANTIVIRAL PROPHYLAXIS
     Route: 050
     Dates: start: 20100901, end: 20100901
  10. TYLENOL [Concomitant]
     Dosage: 2 PILLS DAILY
     Route: 048
     Dates: start: 20100915, end: 20100917
  11. TYLENOL [Concomitant]
     Dosage: 2 PILLS
     Route: 048
     Dates: start: 20100918, end: 20100929
  12. TYLENOL [Concomitant]
     Dosage: 2 PILLS TOTAL
     Route: 048
     Dates: start: 20100930, end: 20110308

REACTIONS (8)
  - Urinary tract infection [Recovered/Resolved]
  - Respiratory tract infection [Recovered/Resolved]
  - Nasopharyngitis [Recovered/Resolved]
  - Influenza [Recovered/Resolved]
  - Headache [Recovered/Resolved]
  - Abdominal distension [Recovered/Resolved]
  - Flatulence [Recovered/Resolved]
  - Dyspepsia [Recovered/Resolved]
